FAERS Safety Report 10230860 (Version 2)
Quarter: 2014Q3

REPORT INFORMATION
  Report Type: Spontaneous
  Country: US (occurrence: US)
  Receive Date: 20140611
  Receipt Date: 20140924
  Transmission Date: 20150326
  Serious: Yes (Other)
  Sender: FDA-Public Use
  Company Number: US-TEVA-487576USA

PATIENT
  Age: 26 Year
  Sex: Female

DRUGS (1)
  1. PARAGARD T380A [Suspect]
     Active Substance: COPPER
     Indication: CONTRACEPTION
     Route: 015
     Dates: end: 20140604

REACTIONS (4)
  - Embedded device [Recovered/Resolved with Sequelae]
  - Device breakage [Recovered/Resolved]
  - Muscle spasms [Unknown]
  - Device expulsion [Recovered/Resolved with Sequelae]

NARRATIVE: CASE EVENT DATE: 20140604
